FAERS Safety Report 6241822-4 (Version None)
Quarter: 2009Q2

REPORT INFORMATION
  Report Type: 
  Country: None (occurrence: None)
  Receive Date: 20090623
  Receipt Date: 20090611
  Transmission Date: 20091009
  Serious: Yes (Other)
  Sender: FDA-Public Use
  Company Number: US-PFIZER INC-2009228533

PATIENT
  Sex: Female
  Weight: 66.224 kg

DRUGS (1)
  1. REVATIO [Suspect]
     Indication: ARTERIAL DISORDER
     Dosage: 20 MG, 1X/DAY
     Dates: start: 20090601, end: 20090607

REACTIONS (14)
  - ABDOMINAL DISTENSION [None]
  - ABDOMINAL PAIN UPPER [None]
  - ANGER [None]
  - BALANCE DISORDER [None]
  - CARDIAC DISORDER [None]
  - DIZZINESS [None]
  - DYSPNOEA [None]
  - EMOTIONAL DISORDER [None]
  - FEAR [None]
  - FEELING ABNORMAL [None]
  - HEADACHE [None]
  - INSOMNIA [None]
  - NERVOUS SYSTEM DISORDER [None]
  - TREMOR [None]
